FAERS Safety Report 8463778-6 (Version None)
Quarter: 2012Q2

REPORT INFORMATION
  Report Type: 
  Country: None (occurrence: None)
  Receive Date: 20120625
  Receipt Date: 20120615
  Transmission Date: 20120825
  Serious: Yes (Other)
  Sender: FDA-Public Use
  Company Number: US-ASTRAZENECA-2012SE40303

PATIENT
  Age: 55 Year
  Sex: Male

DRUGS (3)
  1. CARBETILOL [Concomitant]
     Indication: CHEST PAIN
     Dosage: 3.1/25 MG UNKNOWN
  2. DIAZEPAN [Concomitant]
     Indication: ANXIETY
  3. SYMBICORT [Suspect]
     Indication: CHRONIC OBSTRUCTIVE PULMONARY DISEASE
     Route: 055

REACTIONS (4)
  - CHRONIC OBSTRUCTIVE PULMONARY DISEASE [None]
  - HEPATITIS C [None]
  - PSORIASIS [None]
  - HYPERTENSION [None]
